FAERS Safety Report 7397045-9 (Version None)
Quarter: 2011Q1

REPORT INFORMATION
  Report Type: 
  Country: None (occurrence: None)
  Receive Date: 20110328
  Receipt Date: 20110316
  Transmission Date: 20110831
  Serious: Yes (Life-Threatening)
  Sender: FDA-Public Use
  Company Number: GB-GDP-11410287

PATIENT
  Age: 17 Year
  Sex: Female
  Weight: 60 kg

DRUGS (1)
  1. BENZOYL PEROXIDE (BENZOYL PEROXIDE) 5 % [Suspect]
     Indication: ACNE
     Dosage: 1 DF BID TOPICAL
     Route: 061
     Dates: start: 20110306, end: 20110307

REACTIONS (5)
  - SWELLING FACE [None]
  - NO THERAPEUTIC RESPONSE [None]
  - DYSPNOEA [None]
  - HYPERSENSITIVITY [None]
  - HYPOXIA [None]
